FAERS Safety Report 9651342 (Version 2)
Quarter: 2013Q4

REPORT INFORMATION
  Report Type: Spontaneous
  Country: TH (occurrence: TH)
  Receive Date: 20131029
  Receipt Date: 20131029
  Transmission Date: 20140711
  Serious: Yes (Other)
  Sender: FDA-Public Use
  Company Number: TH-NOVOPROD-381772

PATIENT
  Sex: Female

DRUGS (6)
  1. ACTRAPID HM PENFILL [Suspect]
     Indication: TYPE 2 DIABETES MELLITUS
     Dosage: UNK
     Route: 065
     Dates: start: 20130304, end: 20130617
  2. INSULATARD PENFILL [Suspect]
     Indication: TYPE 2 DIABETES MELLITUS
     Dosage: UNK
     Route: 065
     Dates: start: 20130520, end: 20130617
  3. LEVEMIR FLEXPEN [Suspect]
     Indication: TYPE 2 DIABETES MELLITUS
     Dosage: UNK
     Route: 065
     Dates: start: 20130617
  4. NOVORAPID PENFILL [Suspect]
     Indication: TYPE 2 DIABETES MELLITUS
     Dosage: UNK
     Route: 065
     Dates: start: 20130617
  5. HUMULIN N [Concomitant]
     Dosage: UNK
     Dates: start: 20130227, end: 20130520
  6. HUMULIN R [Concomitant]
     Dosage: UNK
     Dates: start: 20130227, end: 20130304

REACTIONS (6)
  - Hysterectomy [Unknown]
  - Haemorrhage [Unknown]
  - Uterine atony [Unknown]
  - Hypoglycaemia [Unknown]
  - Rash [Unknown]
  - Exposure during pregnancy [Unknown]
